FAERS Safety Report 20148071 (Version 1)
Quarter: 2021Q4

REPORT INFORMATION
  Report Type: Spontaneous
  Country: US (occurrence: US)
  Receive Date: 20211204
  Receipt Date: 20211204
  Transmission Date: 20220303
  Serious: No
  Sender: FDA-Public Use
  Company Number: US-SA-SAC20211202000324

PATIENT
  Age: 47 Year
  Sex: Female

DRUGS (12)
  1. DUPIXENT [Suspect]
     Active Substance: DUPILUMAB
     Indication: Dermatitis atopic
     Dosage: 600 MG, 1X
     Route: 058
     Dates: start: 20211116, end: 20211116
  2. DUPIXENT [Suspect]
     Active Substance: DUPILUMAB
     Indication: Dyshidrotic eczema
  3. MELATONIN [Concomitant]
     Active Substance: MELATONIN
  4. MEDROL [Concomitant]
     Active Substance: METHYLPREDNISOLONE
  5. VALTREX [Concomitant]
     Active Substance: VALACYCLOVIR HYDROCHLORIDE
  6. XYZAL [Concomitant]
     Active Substance: LEVOCETIRIZINE DIHYDROCHLORIDE
  7. CLOBETASOL [Concomitant]
     Active Substance: CLOBETASOL
     Dosage: CLOBETASOL EMOLLIENT 0.05 % CREAM(
  8. HYDROXYZINE HYDROCHLORIDE [Concomitant]
     Active Substance: HYDROXYZINE HYDROCHLORIDE
     Dosage: 25MG
  9. ELIDEL [Concomitant]
     Active Substance: PIMECROLIMUS
  10. IMPOYZ [Concomitant]
     Active Substance: CLOBETASOL PROPIONATE
  11. ALEVICYN DERMAL SPRAY [Concomitant]
     Dosage: LEVICYN 0.009 % SPRAY
  12. PFIZER-BIONTECH COVID-19 VACCINE [Concomitant]
     Active Substance: TOZINAMERAN

REACTIONS (6)
  - Skin exfoliation [Unknown]
  - Pruritus [Unknown]
  - Skin haemorrhage [Unknown]
  - Sleep disorder [Unknown]
  - Skin fissures [Unknown]
  - Dry skin [Not Recovered/Not Resolved]

NARRATIVE: CASE EVENT DATE: 20211101
